FAERS Safety Report 4850058-0 (Version None)
Quarter: 2005Q4

REPORT INFORMATION
  Report Type: 
  Country: None (occurrence: None)
  Receive Date: 20051123
  Receipt Date: 20041020
  Transmission Date: 20060501
  Serious: Yes (Hospitalization, Disabling)
  Sender: FDA-Public Use
  Company Number: 2004081000

PATIENT
  Age: 79 Year
  Sex: Male

DRUGS (4)
  1. ATORVASTATIN CALCIUM [Suspect]
     Indication: CEREBROVASCULAR ACCIDENT
  2. CIPROFLOXACIN [Concomitant]
  3. DONEPEZIL HYDROCHLORIDE [Concomitant]
  4. SINEMET [Concomitant]

REACTIONS (1)
  - RHABDOMYOLYSIS [None]
